FAERS Safety Report 20695608 (Version 1)
Quarter: 2022Q2

REPORT INFORMATION
  Report Type: Spontaneous
  Country: US (occurrence: US)
  Receive Date: 20220411
  Receipt Date: 20220411
  Transmission Date: 20220720
  Serious: No
  Sender: FDA-Public Use
  Company Number: US-PFIZER INC-202101055166

PATIENT
  Age: 56 Year
  Sex: Male
  Weight: 165 kg

DRUGS (1)
  1. CHANTIX [Suspect]
     Active Substance: VARENICLINE TARTRATE
     Indication: Smoking cessation therapy
     Dosage: 10 MG, 2X/DAY
     Dates: start: 2018, end: 202105

REACTIONS (2)
  - Frustration tolerance decreased [Unknown]
  - Overdose [Unknown]
